FAERS Safety Report 8616594-6 (Version None)
Quarter: 2012Q3

REPORT INFORMATION
  Report Type: 
  Country: None (occurrence: None)
  Receive Date: 20120823
  Receipt Date: 20120815
  Transmission Date: 20120928
  Serious: Yes (Disabling)
  Sender: FDA-Public Use
  Company Number: GB-TEVA-353957ISR

PATIENT
  Age: 86 Year
  Sex: Male
  Weight: 69.8 kg

DRUGS (8)
  1. SENNA [Concomitant]
  2. ASPIRIN [Concomitant]
  3. ZOPICLONE [Suspect]
     Indication: INSOMNIA
     Dosage: 3.75 MG, AT BEDTIME
     Route: 048
     Dates: start: 20010301
  4. ZOLADEX [Concomitant]
     Indication: PROSTATE CANCER
     Dosage: UNK
     Dates: start: 20010101
  5. LANSOPRAZOLE [Concomitant]
  6. FUROSEMIDE [Concomitant]
  7. QUETIAPINE [Concomitant]
  8. BICALUTAMIDE [Concomitant]

REACTIONS (2)
  - DEMENTIA [None]
  - INAPPROPRIATE SCHEDULE OF DRUG ADMINISTRATION [None]
